FAERS Safety Report 8636262 (Version 2)
Quarter: 2012Q4

REPORT INFORMATION
  Report Type: Report from Study
  Country: VE (occurrence: VE)
  Receive Date: 20120626
  Receipt Date: 20121231
  Transmission Date: 20130627
  Serious: Yes (Death)
  Sender: FDA-Public Use
  Company Number: VE-ABBOTT-12P-178-0949676-00

PATIENT
  Age: 76 None
  Sex: Female

DRUGS (1)
  1. HUMIRA 40 MG/ 0.8 ML PRE-FILLED SYRINGE [Suspect]
     Indication: RHEUMATOID ARTHRITIS
     Route: 058
     Dates: start: 20110909, end: 20120518

REACTIONS (5)
  - Myocardial infarction [Fatal]
  - Bronchial disorder [Fatal]
  - Liver disorder [Fatal]
  - Nephropathy [Fatal]
  - Sepsis [Fatal]
